FAERS Safety Report 10933674 (Version 10)
Quarter: 2017Q1

REPORT INFORMATION
  Report Type: Report from Study
  Country: CA (occurrence: CA)
  Receive Date: 20150320
  Receipt Date: 20170323
  Transmission Date: 20170428
  Serious: Yes (Death, Hospitalization, Other)
  Sender: FDA-Public Use
  Company Number: CA-ROCHE-1391687

PATIENT
  Age: 64 Year
  Sex: Male
  Weight: 87 kg

DRUGS (19)
  1. ATORVASTATIN [Concomitant]
     Active Substance: ATORVASTATIN
  2. DIPHENHYDRAMINE. [Concomitant]
     Active Substance: DIPHENHYDRAMINE
     Indication: PREMEDICATION
     Route: 048
     Dates: start: 20140415
  3. APO-METOPROLOL [Concomitant]
     Active Substance: METOPROLOL
  4. TYLOSIN [Concomitant]
     Active Substance: TYLOSIN
  5. PREDNISONE. [Concomitant]
     Active Substance: PREDNISONE
  6. NOVASEN [Concomitant]
  7. MISOPROSTOL. [Concomitant]
     Active Substance: MISOPROSTOL
  8. TYLENOL WITH CODEINE [Concomitant]
     Active Substance: ACETAMINOPHEN\CODEINE PHOSPHATE
  9. PENTASA [Concomitant]
     Active Substance: MESALAMINE
  10. APO-FUROSEMIDE [Concomitant]
     Active Substance: FUROSEMIDE
  11. ACETAMINOPHEN. [Concomitant]
     Active Substance: ACETAMINOPHEN
     Indication: PREMEDICATION
     Route: 048
     Dates: start: 20140415, end: 20160817
  12. CANDESARTAN [Concomitant]
     Active Substance: CANDESARTAN
  13. RITUXAN [Suspect]
     Active Substance: RITUXIMAB
     Indication: RHEUMATOID ARTHRITIS
     Dosage: PREVIOUS RITUXIMAB INFUSION ON 07/MAY/2015
     Route: 042
     Dates: start: 20140415, end: 20160817
  14. METHYLPREDNISOLONE. [Concomitant]
     Active Substance: METHYLPREDNISOLONE
     Indication: PREMEDICATION
     Route: 042
     Dates: start: 20140415, end: 20160817
  15. METFORMIN [Concomitant]
     Active Substance: METFORMIN HYDROCHLORIDE
  16. APO-OMEPRAZOLE [Concomitant]
     Active Substance: OMEPRAZOLE
  17. ALENDRONATE [Concomitant]
     Active Substance: ALENDRONATE SODIUM
  18. SUCRALFATE. [Concomitant]
     Active Substance: SUCRALFATE
  19. SPIRIVA [Concomitant]
     Active Substance: TIOTROPIUM BROMIDE MONOHYDRATE

REACTIONS (15)
  - Blood glucose increased [Recovered/Resolved]
  - Aortic aneurysm [Unknown]
  - Skin ulcer [Not Recovered/Not Resolved]
  - Fatigue [Not Recovered/Not Resolved]
  - Blood pressure fluctuation [Unknown]
  - Pain [Unknown]
  - Blood potassium increased [Recovered/Resolved]
  - Osteomyelitis [Unknown]
  - Wound infection [Unknown]
  - Cardiac failure congestive [Recovered/Resolved]
  - Pneumonia [Fatal]
  - Blood potassium increased [Recovered/Resolved]
  - Rheumatoid arthritis [Not Recovered/Not Resolved]
  - Renal disorder [Recovered/Resolved]
  - Heart rate decreased [Unknown]

NARRATIVE: CASE EVENT DATE: 20140925
